FAERS Safety Report 8463958-X (Version None)
Quarter: 2012Q2

REPORT INFORMATION
  Report Type: 
  Country: None (occurrence: None)
  Receive Date: 20120625
  Receipt Date: 20120622
  Transmission Date: 20120825
  Serious: Yes (Death)
  Sender: FDA-Public Use
  Company Number: GB-TEVA-344568ISR

PATIENT
  Age: 40 Year
  Sex: Male

DRUGS (9)
  1. ADCAL-D3 [Concomitant]
     Indication: CROHN'S DISEASE
     Dosage: CONTINUED
     Route: 048
     Dates: start: 20110808
  2. CLARITHROMYCIN [Suspect]
     Indication: LOWER RESPIRATORY TRACT INFECTION
     Route: 048
     Dates: start: 20111001
  3. LANSOPRAZOLE [Concomitant]
     Indication: GASTRITIS
     Route: 048
     Dates: start: 20111019
  4. ORAMORPH SR [Concomitant]
     Indication: PAIN
     Route: 048
     Dates: start: 20110707, end: 20111025
  5. VENTOLIN [Concomitant]
  6. MULTI-VITAMIN [Concomitant]
  7. HUMIRA [Concomitant]
     Indication: CROHN'S DISEASE
     Dosage: CONTINUED
     Route: 030
     Dates: start: 20111005
  8. DIAZEPAM [Concomitant]
     Indication: ANXIETY
     Route: 048
     Dates: start: 20111019
  9. METHADONE HCL [Interacting]
     Indication: PAIN
     Dosage: INDICATION: PAIN CONTROL
     Route: 048
     Dates: start: 20111025

REACTIONS (1)
  - DRUG INTERACTION [None]
